FAERS Safety Report 10187269 (Version 2)
Quarter: 2014Q3

REPORT INFORMATION
  Report Type: Spontaneous
  Country: US (occurrence: None)
  Receive Date: 20140520
  Receipt Date: 20140707
  Transmission Date: 20150326
  Serious: Yes (Hospitalization, Other)
  Sender: FDA-Public Use
  Company Number: 2014-US-005455

PATIENT
  Age: 69 Year
  Sex: Female
  Weight: 63.5 kg

DRUGS (2)
  1. XYREM [Suspect]
     Active Substance: SODIUM OXYBATE
     Indication: NARCOLEPSY
     Route: 048
     Dates: start: 200804, end: 2008
  2. ADDERALL (AMFETAMINE ASPARTATE, AFETAMINESULFATE, DEXAMFETAMINE SACCHARATE, DEXMFETAMINE SULFATE) [Concomitant]

REACTIONS (5)
  - Intentional product misuse [None]
  - Condition aggravated [None]
  - Myocardial infarction [None]
  - Neck pain [None]
  - Insomnia [None]

NARRATIVE: CASE EVENT DATE: 201310
